FAERS Safety Report 4720588-0 (Version None)
Quarter: 2005Q3

REPORT INFORMATION
  Report Type: 
  Country: None (occurrence: None)
  Receive Date: 20050721
  Receipt Date: 20050525
  Transmission Date: 20060218
  Serious: Yes (Life-Threatening, Hospitalization, Other)
  Sender: FDA-Public Use
  Company Number: PHRM2005FR01643

PATIENT
  Age: 68 Year
  Sex: Male
  Weight: 111 kg

DRUGS (10)
  1. KETEK [Suspect]
     Indication: BRONCHITIS
     Dosage: 800 MG, QD
     Route: 048
     Dates: start: 20041201
  2. LESCOL [Suspect]
     Indication: DYSLIPIDAEMIA
     Dosage: 80 MG, QD
     Route: 048
     Dates: start: 20040101, end: 20041201
  3. FUROSEMIDE [Concomitant]
     Indication: HYPERTENSION
  4. ARTEX [Concomitant]
     Indication: HYPERTENSION
     Route: 048
  5. FOZITEC [Concomitant]
     Indication: HYPERTENSION
     Route: 048
  6. ZANIDIP [Concomitant]
     Indication: HYPERTENSION
     Route: 048
  7. HYPERIUM [Concomitant]
     Indication: HYPERTENSION
     Route: 048
  8. LYSANXIA [Concomitant]
     Indication: ANXIETY
     Dosage: 10 MG, QD
     Route: 048
  9. EXOMUC [Concomitant]
     Route: 048
  10. SOLUPRED [Concomitant]
     Indication: BRONCHITIS
     Route: 048

REACTIONS (5)
  - ANGIONEUROTIC OEDEMA [None]
  - APHASIA [None]
  - MALAISE [None]
  - NASOPHARYNGEAL DISORDER [None]
  - PARAESTHESIA ORAL [None]
